FAERS Safety Report 15152995 (Version 3)
Quarter: 2018Q3

REPORT INFORMATION
  Report Type: Spontaneous
  Country: US (occurrence: US)
  Receive Date: 20180717
  Receipt Date: 20180810
  Transmission Date: 20181010
  Serious: No
  Sender: FDA-Public Use
  Company Number: US-PFIZER INC-2018284036

PATIENT
  Age: 47 Year
  Sex: Male
  Weight: 128.16 kg

DRUGS (15)
  1. DEXMETHYLPHENIDATE [Concomitant]
     Active Substance: DEXMETHYLPHENIDATE HYDROCHLORIDE
     Dosage: 10 MG, 2X/DAY (TAKE 1 TABLET BY ORAL ROUTE 2 TIMES EVERY DAY AT LEAST 4 HOURS APART)
     Route: 048
     Dates: start: 20180408
  2. LOSARTAN. [Concomitant]
     Active Substance: LOSARTAN
     Dosage: 50 MG, DAILY
     Route: 048
     Dates: start: 20180527
  3. OSELTAMIVIR [Concomitant]
     Active Substance: OSELTAMIVIR
     Dosage: 75 MG, UNK
     Dates: start: 20180129, end: 20180613
  4. METHYLPREDNISOLONE. [Suspect]
     Active Substance: METHYLPREDNISOLONE
     Dosage: 2 MG, 1X/DAY
     Route: 048
     Dates: start: 20180517
  5. MOBIC [Concomitant]
     Active Substance: MELOXICAM
     Dosage: 15 MG, AS NEEDED (EVERY DAY AS NEEDED, IOWERING PREDNISONE)
     Route: 048
     Dates: start: 20180613
  6. METHOTREXATE SODIUM. [Suspect]
     Active Substance: METHOTREXATE SODIUM
     Dosage: 15 MG, UNK
     Route: 048
  7. METHOTREXATE SODIUM. [Suspect]
     Active Substance: METHOTREXATE SODIUM
     Dosage: 7.5 MG, UNK
     Route: 048
  8. METHOTREXATE SODIUM. [Suspect]
     Active Substance: METHOTREXATE SODIUM
     Dosage: 10 MG, WEEKLY
     Route: 048
     Dates: start: 20180613
  9. AMLODIPINE [Concomitant]
     Active Substance: AMLODIPINE BESYLATE
     Dosage: 5 MG, 2X/DAY
     Route: 048
     Dates: start: 20180611
  10. PREDNISONE. [Concomitant]
     Active Substance: PREDNISONE
     Dosage: 4 MG, DAILY (TAPERING AS DIRECTED WITH THE 5 MG)
     Route: 048
     Dates: start: 20180613
  11. QSYMIA [Concomitant]
     Active Substance: PHENTERMINE HYDROCHLORIDE\TOPIRAMATE
     Dosage: UNK (PHENTERMINE HYDROCHLORIDE 15 MG? TOPIRAMATE?92 MG)
     Dates: start: 20180319, end: 20180613
  12. XELJANZ XR [Concomitant]
     Active Substance: TOFACITINIB CITRATE
     Dosage: 11 MG, DAILY
     Route: 048
     Dates: start: 20180613
  13. PREDNISONE. [Concomitant]
     Active Substance: PREDNISONE
     Dosage: 5 MG, 2X/DAY (TAPER AS DIRECTED)
     Route: 048
     Dates: start: 20180613
  14. ALLOPURINOL. [Concomitant]
     Active Substance: ALLOPURINOL
     Dosage: 300 MG, DAILY
     Route: 048
  15. HYDROCHLOROTHIAZIDE. [Concomitant]
     Active Substance: HYDROCHLOROTHIAZIDE
     Dosage: 25 MG, DAILY
     Route: 048
     Dates: start: 20180320

REACTIONS (1)
  - Drug effect incomplete [Unknown]
